FAERS Safety Report 5089289-6 (Version None)
Quarter: 2006Q3

REPORT INFORMATION
  Report Type: 
  Country: None (occurrence: None)
  Receive Date: 20060825
  Receipt Date: 20060815
  Transmission Date: 20061208
  Serious: Yes (Hospitalization)
  Sender: FDA-Public Use
  Company Number: US-ABBOTT-06P-163-0340876-00

PATIENT
  Sex: Male
  Weight: 95.34 kg

DRUGS (6)
  1. TRICOR [Suspect]
     Indication: BLOOD CHOLESTEROL INCREASED
     Route: 048
     Dates: start: 20060301, end: 20060701
  2. METFORMIN HCL [Concomitant]
     Indication: DIABETES MELLITUS MANAGEMENT
     Route: 048
  3. NITROGLYCERIN [Concomitant]
     Indication: ANGINA PECTORIS
     Route: 048
  4. ZESTORETIC [Concomitant]
     Indication: HYPERTENSION
     Route: 048
  5. METOPROLOL SUCCINATE [Concomitant]
     Indication: HYPERTENSION
     Route: 048
  6. ROSIGLITAZONE MALEATE [Concomitant]
     Indication: DIABETES MELLITUS MANAGEMENT
     Route: 048

REACTIONS (5)
  - ARTHRALGIA [None]
  - MUSCLE SPASMS [None]
  - MYALGIA [None]
  - PULMONARY EMBOLISM [None]
  - THROMBOSIS [None]
